FAERS Safety Report 5504411-2 (Version None)
Quarter: 2007Q4

REPORT INFORMATION
  Report Type: 
  Country: None (occurrence: None)
  Receive Date: 20071101
  Receipt Date: 20071022
  Transmission Date: 20080405
  Serious: Yes (Other)
  Sender: FDA-Public Use
  Company Number: IL-PFIZER INC-2007089473

PATIENT
  Age: 70 Year
  Sex: Male

DRUGS (1)
  1. LUSTRAL [Suspect]
     Indication: DEPRESSION
     Route: 048

REACTIONS (3)
  - COORDINATION ABNORMAL [None]
  - MASKED FACIES [None]
  - PARKINSON'S DISEASE [None]
